FAERS Safety Report 6370880-1 (Version None)
Quarter: 2009Q3

REPORT INFORMATION
  Report Type: 
  Country: None (occurrence: None)
  Receive Date: 20090923
  Receipt Date: 20070530
  Transmission Date: 20100115
  Serious: Yes (Other)
  Sender: FDA-Public Use
  Company Number: US-ASTRAZENECA-2006UW22602

PATIENT
  Age: 27 Year
  Sex: Female
  Weight: 71.2 kg

DRUGS (12)
  1. SEROQUEL [Suspect]
     Indication: DEPRESSION
     Route: 048
     Dates: end: 20030101
  2. SEROQUEL [Suspect]
     Dosage: 50-100 MG
     Route: 048
     Dates: start: 20031014
  3. TOPAMAX [Concomitant]
     Indication: WEIGHT CONTROL
  4. XENICAL [Concomitant]
     Indication: WEIGHT CONTROL
  5. PHENTERMINE HYDROCHLORIDE [Concomitant]
     Indication: WEIGHT CONTROL
  6. LEXAPRO [Concomitant]
  7. DILANTIN [Concomitant]
  8. YASMIN [Concomitant]
  9. CLORAZEPATE DIPOTASSIUM [Concomitant]
  10. DEMEROL [Concomitant]
  11. VISTARIL [Concomitant]
  12. TYLOX [Concomitant]

REACTIONS (2)
  - HYPERGLYCAEMIA [None]
  - PANCREATITIS [None]
